FAERS Safety Report 4439049-1 (Version None)
Quarter: 2004Q3

REPORT INFORMATION
  Report Type: 
  Country: None (occurrence: None)
  Receive Date: 20040901
  Receipt Date: 20040617
  Transmission Date: 20050211
  Serious: Yes (Hospitalization, Other)
  Sender: FDA-Public Use
  Company Number: US-GLAXOSMITHKLINE-A0515140A

PATIENT
  Age: 76 Year
  Sex: Female
  Weight: 80.9 kg

DRUGS (5)
  1. HYCAMTIN [Suspect]
     Route: 042
     Dates: start: 20040526, end: 20040809
  2. METOPROLOL [Concomitant]
     Dosage: 25MG TWICE PER DAY
  3. ASPIRIN [Concomitant]
     Dosage: 325MG PER DAY
  4. LEVOXYL [Concomitant]
     Dosage: 100MCG PER DAY
  5. SPIRONOLACTONE [Concomitant]
     Dosage: 25MG TWICE PER DAY

REACTIONS (7)
  - DYSPNOEA EXERTIONAL [None]
  - FATIGUE [None]
  - HAEMATOCRIT DECREASED [None]
  - HAEMOGLOBIN DECREASED [None]
  - PANCYTOPENIA [None]
  - THROMBOCYTOPENIA [None]
  - WHITE BLOOD CELL COUNT DECREASED [None]
